FAERS Safety Report 12886913 (Version 1)
Quarter: 2016Q4

REPORT INFORMATION
  Report Type: Spontaneous
  Country: US (occurrence: US)
  Receive Date: 20161026
  Receipt Date: 20161026
  Transmission Date: 20170207
  Serious: No
  Sender: FDA-Public Use
  Company Number: US-BAYER-2016-196833

PATIENT
  Age: 63 Year
  Sex: Female
  Weight: 53.61 kg

DRUGS (4)
  1. MIRAFIBER SUGAR FREE ORANGE POWDER [Suspect]
     Active Substance: METHYLCELLULOSES
     Indication: GASTROINTESTINAL DISORDER
     Dosage: 1 DF, UNK
     Route: 048
     Dates: start: 201609
  2. GABAPENTIN. [Concomitant]
     Active Substance: GABAPENTIN
  3. MIRALAX [Suspect]
     Active Substance: POLYETHYLENE GLYCOL 3350
     Indication: GASTROINTESTINAL DISORDER
     Dosage: UNK (1 DOSE)
     Route: 048
     Dates: start: 2013, end: 201608
  4. MIRAFIBER SUGAR FREE ORANGE POWDER [Suspect]
     Active Substance: METHYLCELLULOSES
     Indication: GASTROINTESTINAL DISORDER
     Dosage: 0.5 DF, BID

REACTIONS (6)
  - Expired product administered [None]
  - Product use issue [Unknown]
  - Product use issue [None]
  - Flatulence [Recovered/Resolved]
  - Defaecation urgency [Recovered/Resolved]
  - Abdominal distension [Unknown]

NARRATIVE: CASE EVENT DATE: 2013
